FAERS Safety Report 25142967 (Version 2)
Quarter: 2025Q2

REPORT INFORMATION
  Report Type: Report from Study
  Country: US (occurrence: US)
  Receive Date: 20250401
  Receipt Date: 20250407
  Transmission Date: 20250717
  Serious: Yes (Hospitalization, Other)
  Sender: ABBVIE
  Company Number: US-ABBVIE-6197086

PATIENT
  Age: 48 Year
  Sex: Female

DRUGS (2)
  1. CREON [Suspect]
     Active Substance: PANCRELIPASE AMYLASE\PANCRELIPASE LIPASE\PANCRELIPASE PROTEASE
     Indication: Product used for unknown indication
     Route: 048
     Dates: start: 20190401
  2. CREON [Suspect]
     Active Substance: PANCRELIPASE AMYLASE\PANCRELIPASE LIPASE\PANCRELIPASE PROTEASE
     Indication: Product used for unknown indication
     Route: 048
     Dates: start: 20190514

REACTIONS (7)
  - Cholelithiasis obstructive [Unknown]
  - Hospitalisation [Unknown]
  - Pancreatic duct obstruction [Unknown]
  - Nervous system disorder [Unknown]
  - Coeliac plexus block [Unknown]
  - Alopecia [Unknown]
  - Illness [Unknown]

NARRATIVE: CASE EVENT DATE: 20190901
